FAERS Safety Report 9831686 (Version 1)
Quarter: 2014Q1

REPORT INFORMATION
  Report Type: Report from Study
  Country: US (occurrence: US)
  Receive Date: 20140121
  Receipt Date: 20140121
  Transmission Date: 20141002
  Serious: Yes (Disabling)
  Sender: FDA-Public Use
  Company Number: US-JNJFOC-20140106453

PATIENT
  Sex: Female

DRUGS (1)
  1. STELARA [Suspect]
     Indication: PRODUCT USED FOR UNKNOWN INDICATION
     Route: 058

REACTIONS (9)
  - Impaired driving ability [Unknown]
  - Fall [Unknown]
  - Wrist fracture [Unknown]
  - Joint dislocation [Unknown]
  - Head injury [Unknown]
  - Loss of consciousness [Unknown]
  - Aphonia [Unknown]
  - Neck injury [Unknown]
  - Scar [Unknown]
